FAERS Safety Report 19614060 (Version 1)
Quarter: 2021Q3

REPORT INFORMATION
  Report Type: Spontaneous
  Country: US (occurrence: US)
  Receive Date: 20210727
  Receipt Date: 20210727
  Transmission Date: 20211014
  Serious: No
  Sender: FDA-Public Use
  Company Number: US-BAUSCH-BL-2021-021721

PATIENT
  Age: 41 Year
  Sex: Male

DRUGS (2)
  1. OPCON?A [Suspect]
     Active Substance: NAPHAZOLINE HYDROCHLORIDE\PHENIRAMINE MALEATE
     Indication: EYE PRURITUS
     Dosage: HE STARTED THE PRODUCT IN HIS LEFT EYE.
     Route: 047
     Dates: start: 20210616, end: 202106
  2. OPCON?A [Suspect]
     Active Substance: NAPHAZOLINE HYDROCHLORIDE\PHENIRAMINE MALEATE
     Indication: HYPERSENSITIVITY

REACTIONS (2)
  - Mydriasis [Recovered/Resolved]
  - Vision blurred [Not Recovered/Not Resolved]

NARRATIVE: CASE EVENT DATE: 20210616
